FAERS Safety Report 11218832 (Version 1)
Quarter: 2015Q2

REPORT INFORMATION
  Report Type: Spontaneous
  Country: IT (occurrence: IT)
  Receive Date: 20150625
  Receipt Date: 20150625
  Transmission Date: 20150821
  Serious: Yes (Other)
  Sender: FDA-Public Use
  Company Number: IT-BANPHARM-20153992

PATIENT
  Age: 30 Year
  Sex: Female

DRUGS (1)
  1. PROGESTERONE UNKNOWN PRODUCT [Suspect]
     Active Substance: PROGESTERONE
     Dosage: 0.2 ML,
     Route: 023

REACTIONS (1)
  - Autoimmune dermatitis [Unknown]
